FAERS Safety Report 5195599-4 (Version None)
Quarter: 2007Q1

REPORT INFORMATION
  Report Type: 
  Country: None (occurrence: None)
  Receive Date: 20070102
  Receipt Date: 20061221
  Transmission Date: 20070707
  Serious: Yes (Hospitalization)
  Sender: FDA-Public Use
  Company Number: FR-AVENTIS-200614545FR

PATIENT
  Age: 76 Year
  Sex: Female

DRUGS (5)
  1. LOVENOX [Suspect]
     Route: 058
     Dates: start: 20061109, end: 20061206
  2. NEO-MERCAZOLE TAB [Suspect]
     Indication: HYPERTHYROIDISM
     Route: 048
     Dates: start: 20061107, end: 20061111
  3. AVLOCARDYL [Suspect]
     Indication: ESSENTIAL HYPERTENSION
     Route: 048
     Dates: start: 20061107
  4. PAROXETINE HCL [Suspect]
     Indication: DEPRESSION
     Route: 048
  5. DOGMATIL [Concomitant]
     Route: 048
     Dates: end: 20061121

REACTIONS (1)
  - NEUTROPENIA [None]
